FAERS Safety Report 5952593-0 (Version None)
Quarter: 2008Q4

REPORT INFORMATION
  Report Type: 
  Country: None (occurrence: None)
  Receive Date: 20081031
  Receipt Date: 20080206
  Transmission Date: 20090506
  Serious: Yes (Other)
  Sender: FDA-Public Use
  Company Number: US022620

PATIENT
  Age: 54 Year
  Sex: Female
  Weight: 78.9259 kg

DRUGS (21)
  1. PROVIGIL [Suspect]
     Indication: HYPERSOMNIA
     Dosage: 200 MG BID ORAL
     Route: 048
     Dates: start: 20060601
  2. BIOTIN [Concomitant]
  3. METOCLOPRAMIDE [Concomitant]
  4. CYMBALTA [Concomitant]
  5. FOLBIC [Concomitant]
  6. ACEBUTOLOL [Concomitant]
  7. METHOTREXATE [Concomitant]
  8. LYRICA [Concomitant]
  9. ESTRACE [Concomitant]
  10. OXYCONTIN [Concomitant]
  11. MIRALAX [Concomitant]
  12. FISH OIL CONCENTRATE [Concomitant]
  13. CLONAZEPAM [Concomitant]
  14. VITAMIN D [Concomitant]
  15. CALCIUM [Concomitant]
  16. SLOW-MAG [Concomitant]
  17. PROTONIX [Concomitant]
  18. RESTASIS [Concomitant]
  19. MILK OF MAG [Concomitant]
  20. LASIX [Concomitant]
  21. POTASSIUM KLOR [Concomitant]

REACTIONS (6)
  - CHEST PAIN [None]
  - COMPULSIONS [None]
  - DEPRESSION SUICIDAL [None]
  - DYSPNOEA [None]
  - IMPAIRED HEALING [None]
  - MASS [None]
